FAERS Safety Report 14034377 (Version 1)
Quarter: 2017Q4

REPORT INFORMATION
  Report Type: Spontaneous
  Country: JP (occurrence: JP)
  Receive Date: 20171003
  Receipt Date: 20171003
  Transmission Date: 20180321
  Serious: Yes (Hospitalization, Other)
  Sender: FDA-Public Use
  Company Number: JP-BRISTOL-MYERS SQUIBB COMPANY-BMS-2017-087868

PATIENT
  Age: 21 Year
  Sex: Female

DRUGS (5)
  1. PIOGLITAZONE                       /01460202/ [Suspect]
     Active Substance: PIOGLITAZONE HYDROCHLORIDE
     Indication: OEDEMA PERIPHERAL
     Dosage: 7.5 MG, UNK
     Route: 065
     Dates: start: 2013, end: 201410
  2. FUROSEMIDE                         /00032602/ [Suspect]
     Active Substance: FUROSEMIDE
     Indication: OEDEMA PERIPHERAL
     Dosage: 20 MG, UNK
     Route: 065
     Dates: start: 2013, end: 201410
  3. METGLUCO [Suspect]
     Active Substance: METFORMIN HYDROCHLORIDE
     Indication: TYPE 2 DIABETES MELLITUS
     Dosage: 750 MG, QD
     Route: 048
  4. METGLUCO [Suspect]
     Active Substance: METFORMIN HYDROCHLORIDE
     Indication: PRODUCT USED FOR UNKNOWN INDICATION
     Dosage: 2250 MG, QD
     Route: 048
     Dates: start: 2011, end: 201410
  5. IPRAGLIFLOZIN [Suspect]
     Active Substance: IPRAGLIFLOZIN
     Indication: PRODUCT USED FOR UNKNOWN INDICATION
     Dosage: 50 MG, UNK
     Route: 065
     Dates: start: 201406, end: 201410

REACTIONS (5)
  - Hyperglycaemia [Recovering/Resolving]
  - Lethargy [Recovering/Resolving]
  - Nausea [Recovering/Resolving]
  - Oedema peripheral [Recovering/Resolving]
  - Ketoacidosis [Recovering/Resolving]
